FAERS Safety Report 4350345-9 (Version None)
Quarter: 2004Q2

REPORT INFORMATION
  Report Type: 
  Country: None (occurrence: None)
  Receive Date: 20040427
  Receipt Date: 20031002
  Transmission Date: 20050107
  Serious: No
  Sender: FDA-Public Use
  Company Number: 000659

PATIENT
  Age: 65 Year
  Sex: Male

DRUGS (7)
  1. ZEVALIN [Suspect]
     Indication: NON-HODGKIN'S LYMPHOMA
     Dosage: SEE IMAGE
     Dates: start: 20020901, end: 20020901
  2. ZEVALIN [Suspect]
     Indication: NON-HODGKIN'S LYMPHOMA
     Dosage: SEE IMAGE
     Dates: start: 20020901, end: 20020901
  3. ZEVALIN [Suspect]
     Indication: NON-HODGKIN'S LYMPHOMA
     Dosage: SEE IMAGE
     Dates: start: 20020901, end: 20020901
  4. ZEVALIN [Suspect]
     Indication: NON-HODGKIN'S LYMPHOMA
     Dosage: SEE IMAGE
     Dates: start: 20020901, end: 20020901
  5. ZEVALIN [Suspect]
     Dosage: SEE IMAGE
  6. ZEVALIN [Suspect]
  7. .. [Suspect]

REACTIONS (1)
  - DISEASE PROGRESSION [None]
